FAERS Safety Report 8227210-X (Version None)
Quarter: 2012Q1

REPORT INFORMATION
  Report Type: 
  Country: None (occurrence: None)
  Receive Date: 20120322
  Receipt Date: 20120316
  Transmission Date: 20120608
  Serious: Yes (Hospitalization)
  Sender: FDA-Public Use
  Company Number: US-BAYER-2011-040181

PATIENT
  Age: 18 Year
  Sex: Female
  Weight: 72.562 kg

DRUGS (1)
  1. YAZ [Suspect]
     Dosage: UNK
     Route: 048
     Dates: start: 20080201, end: 20081001

REACTIONS (9)
  - CHOLECYSTITIS CHRONIC [None]
  - WEIGHT DECREASED [None]
  - MENTAL DISORDER [None]
  - MALAISE [None]
  - BILE DUCT STONE [None]
  - GALLBLADDER DISORDER [None]
  - PAIN [None]
  - FEAR [None]
  - INJURY [None]
